FAERS Safety Report 4970712-X (Version None)
Quarter: 2006Q2

REPORT INFORMATION
  Report Type: 
  Country: None (occurrence: None)
  Receive Date: 20060411
  Receipt Date: 20060411
  Transmission Date: 20061013
  Serious: Yes (Other)
  Sender: FDA-Public Use
  Company Number: None

PATIENT
  Age: 55 Year
  Sex: Male
  Weight: 112.4 kg

DRUGS (1)
  1. BACTRIM DS [Suspect]
     Indication: UPPER RESPIRATORY TRACT INFECTION
     Dosage: BID, DS BID, ORAL
     Route: 048
     Dates: start: 20060303, end: 20060306

REACTIONS (1)
  - RASH [None]
